FAERS Safety Report 13544550 (Version 3)
Quarter: 2017Q3

REPORT INFORMATION
  Report Type: Report from Study
  Country: AU (occurrence: AU)
  Receive Date: 20170515
  Receipt Date: 20170807
  Transmission Date: 20171127
  Serious: Yes (Hospitalization, Other)
  Sender: FDA-Public Use
  Company Number: PHHY2017AU026113

PATIENT
  Sex: Male

DRUGS (1)
  1. SANDOSTATIN LAR DEPOT [Suspect]
     Active Substance: OCTREOTIDE ACETATE
     Indication: CARCINOID SYNDROME
     Dosage: 30 MG, UNK
     Route: 030

REACTIONS (5)
  - Urinary tract infection [Recovering/Resolving]
  - Rectal haemorrhage [Recovering/Resolving]
  - Chest pain [Unknown]
  - Pneumonia [Not Recovered/Not Resolved]
  - Urosepsis [Recovering/Resolving]
